FAERS Safety Report 24139578 (Version 1)
Quarter: 2024Q3

REPORT INFORMATION
  Report Type: Spontaneous
  Country: US (occurrence: US)
  Receive Date: 20240726
  Receipt Date: 20240726
  Transmission Date: 20241016
  Serious: Yes (Other)
  Sender: BRISTOL MYERS SQUIBB
  Company Number: US-BRISTOL-MYERS SQUIBB COMPANY-2024-114288

PATIENT
  Age: 89 Year
  Sex: Female
  Weight: 41.28 kg

DRUGS (1)
  1. ONUREG [Suspect]
     Active Substance: AZACITIDINE
     Indication: Acute myeloid leukaemia
     Dosage: FREQUENCY: DAILY ON DAYS 1-14 OF A 28 DAY CYCLE
     Route: 048

REACTIONS (1)
  - Acute myeloid leukaemia [Unknown]
